FAERS Safety Report 6362251-9 (Version None)
Quarter: 2009Q3

REPORT INFORMATION
  Report Type: 
  Country: None (occurrence: None)
  Receive Date: 20090918
  Receipt Date: 20090611
  Transmission Date: 20100115
  Serious: No
  Sender: FDA-Public Use
  Company Number: US-ABBOTT-09P-163-0579611-00

PATIENT
  Sex: Female
  Weight: 136.2 kg

DRUGS (5)
  1. HUMIRA [Suspect]
     Indication: PSORIASIS
     Route: 058
     Dates: start: 20090401, end: 20090401
  2. HUMIRA [Suspect]
     Indication: PSORIATIC ARTHROPATHY
     Route: 058
     Dates: start: 20090401
  3. TRAMADOL HCL [Concomitant]
     Indication: PAIN
  4. FLEXERIL [Concomitant]
     Indication: SLEEP DISORDER THERAPY
  5. AMLODIPINE [Concomitant]
     Indication: HYPERTENSION

REACTIONS (7)
  - CHILLS [None]
  - DRUG EFFECT DECREASED [None]
  - FATIGUE [None]
  - FEELING HOT [None]
  - OCULAR HYPERAEMIA [None]
  - PAIN [None]
  - TREMOR [None]
